FAERS Safety Report 6678060-7 (Version None)
Quarter: 2010Q2

REPORT INFORMATION
  Report Type: 
  Country: None (occurrence: None)
  Receive Date: 20100412
  Receipt Date: 20100406
  Transmission Date: 20101027
  Serious: Yes (Death, Other)
  Sender: FDA-Public Use
  Company Number: PHEH2009US18952

PATIENT
  Sex: Female

DRUGS (16)
  1. GLEEVEC [Suspect]
     Indication: GASTROINTESTINAL STROMAL TUMOUR
     Dosage: 100 MG DAILY
     Route: 048
     Dates: start: 20090401, end: 20090501
  2. GLEEVEC [Suspect]
     Dosage: 200 MG DAILY
     Route: 048
  3. GLEEVEC [Suspect]
     Dosage: 400 MG DAILY
  4. NASONEX [Concomitant]
  5. ZETIA [Concomitant]
  6. SYNTHROID [Concomitant]
  7. GLIPIZIDE [Concomitant]
  8. DILTIAZEM [Concomitant]
  9. LIPITOR [Concomitant]
  10. AVAPRO [Concomitant]
  11. VITAMINS [Concomitant]
  12. DUONEB [Concomitant]
  13. SPIRIVA [Concomitant]
  14. CARDIZEM [Concomitant]
  15. HYDROCODONE BITARTRATE [Concomitant]
  16. SYMBICORT [Concomitant]

REACTIONS (31)
  - ABDOMINAL PAIN [None]
  - ANAEMIA [None]
  - ANXIETY [None]
  - ARTHRALGIA [None]
  - ASTHENIA [None]
  - BACK PAIN [None]
  - CHEST PAIN [None]
  - COUGH [None]
  - DEATH [None]
  - DECREASED APPETITE [None]
  - DEPRESSION [None]
  - DIARRHOEA [None]
  - DYSPNOEA [None]
  - FATIGUE [None]
  - HAEMORRHAGIC DIATHESIS [None]
  - HEADACHE [None]
  - HEARING IMPAIRED [None]
  - INCORRECT DOSE ADMINISTERED [None]
  - INSOMNIA [None]
  - MELAENA [None]
  - NAUSEA [None]
  - OEDEMA PERIPHERAL [None]
  - OROPHARYNGEAL PAIN [None]
  - PALLOR [None]
  - PALPITATIONS [None]
  - PARAESTHESIA [None]
  - PYREXIA [None]
  - VISUAL IMPAIRMENT [None]
  - VOMITING [None]
  - WEIGHT FLUCTUATION [None]
  - WHEEZING [None]
